FAERS Safety Report 11911445 (Version 2)
Quarter: 2016Q1

REPORT INFORMATION
  Report Type: Spontaneous
  Country: NO (occurrence: NO)
  Receive Date: 20160112
  Receipt Date: 20160209
  Transmission Date: 20160526
  Serious: Yes (Hospitalization)
  Sender: FDA-Public Use
  Company Number: NO-PFIZER INC-2016008153

PATIENT
  Age: 63 Year
  Sex: Female

DRUGS (2)
  1. AFINITOR [Suspect]
     Active Substance: EVEROLIMUS
     Indication: BREAST CANCER
     Dosage: 10 MG, 1X/DAY
     Route: 048
     Dates: start: 201405, end: 201411
  2. AROMASIN [Suspect]
     Active Substance: EXEMESTANE
     Indication: BREAST CANCER
     Dosage: 25 MG, 1X/DAY
     Route: 048
     Dates: start: 201405, end: 201412

REACTIONS (10)
  - Diarrhoea [Recovered/Resolved]
  - Pyrexia [Unknown]
  - Haemoglobin decreased [Unknown]
  - Weight decreased [Recovered/Resolved]
  - Dyspnoea [Unknown]
  - Malaise [Unknown]
  - Pneumonia [Recovered/Resolved]
  - Anaemia [Recovered/Resolved]
  - Cough [Unknown]
  - Fatigue [Unknown]

NARRATIVE: CASE EVENT DATE: 201409
